FAERS Safety Report 8345674-8 (Version None)
Quarter: 2012Q2

REPORT INFORMATION
  Report Type: 
  Country: None (occurrence: None)
  Receive Date: 20120508
  Receipt Date: 20120430
  Transmission Date: 20120825
  Serious: Yes (Other)
  Sender: FDA-Public Use
  Company Number: US-RB-038381-12

PATIENT
  Age: 22 Year
  Sex: Female

DRUGS (6)
  1. CELEXA [Suspect]
     Indication: ANXIETY
     Dosage: DAILY - DOSE UNSPECIFIED
     Route: 048
     Dates: end: 20120301
  2. CELEXA [Suspect]
     Indication: DEPRESSION
     Dosage: DAILY - DOSE UNSPECIFIED
     Route: 048
     Dates: end: 20120301
  3. KLONOPIN [Suspect]
     Indication: ANXIETY
     Dosage: 0.5 MG AS NEEDED
     Route: 048
     Dates: start: 20120401
  4. BENADRYL [Suspect]
     Indication: MULTIPLE ALLERGIES
     Dosage: ONE DOSE-ONCE
     Route: 048
     Dates: start: 20120427, end: 20120427
  5. PROZAC [Suspect]
     Indication: DEPRESSION
     Route: 048
     Dates: start: 20120401
  6. SUBOXONE [Suspect]
     Indication: DRUG DEPENDENCE
     Dosage: 8 MG DAILY TAPERED TO SMALL PIECES
     Route: 060
     Dates: start: 20120301

REACTIONS (8)
  - FEELING ABNORMAL [None]
  - CHEST PAIN [None]
  - DIZZINESS [None]
  - PETIT MAL EPILEPSY [None]
  - UNDERDOSE [None]
  - PALPITATIONS [None]
  - DYSPNOEA [None]
  - WRONG TECHNIQUE IN DRUG USAGE PROCESS [None]
